FAERS Safety Report 7956340-2 (Version None)
Quarter: 2011Q4

REPORT INFORMATION
  Report Type: 
  Country: None (occurrence: None)
  Receive Date: 20111205
  Receipt Date: 20111202
  Transmission Date: 20120403
  Serious: Yes (Other)
  Sender: FDA-Public Use
  Company Number: US-PFIZER INC-2011295054

PATIENT
  Sex: Male
  Weight: 127 kg

DRUGS (3)
  1. PROCARDIA XL [Suspect]
     Indication: HYPERTENSION
     Dosage: 60 MG, DAILY
     Route: 048
     Dates: start: 19900101
  2. PROCARDIA XL [Suspect]
     Dosage: UNK
     Route: 048
  3. PROCARDIA XL [Suspect]
     Dosage: 30 MG, 2X/DAY
     Route: 048

REACTIONS (1)
  - VASCULAR GRAFT [None]
